FAERS Safety Report 7628518-9 (Version None)
Quarter: 2011Q3

REPORT INFORMATION
  Report Type: 
  Country: None (occurrence: None)
  Receive Date: 20110721
  Receipt Date: 20110721
  Transmission Date: 20111222
  Serious: No
  Sender: FDA-Public Use
  Company Number: None

PATIENT
  Age: 84 Year
  Sex: Male
  Weight: 85.8 kg

DRUGS (1)
  1. COLCHICINE [Suspect]
     Dosage: 1 TAB PRN PO
     Route: 048
     Dates: start: 20110520, end: 20110524

REACTIONS (1)
  - DIARRHOEA [None]
